FAERS Safety Report 5988882-3 (Version None)
Quarter: 2008Q4

REPORT INFORMATION
  Report Type: 
  Country: None (occurrence: None)
  Receive Date: 20081208
  Receipt Date: 20081208
  Transmission Date: 20090506
  Serious: No
  Sender: FDA-Public Use
  Company Number: None

PATIENT
  Age: 54 Year
  Sex: Female
  Weight: 67.586 kg

DRUGS (2)
  1. CARISOPRODOL [Suspect]
     Indication: HEADACHE
     Dosage: 1 TABLET 3 TIMES A DAY PO
     Route: 048
     Dates: start: 20080922, end: 20081120
  2. CARISOPRODOL [Suspect]
     Indication: MUSCLE RELAXANT THERAPY
     Dosage: 1 TABLET 3 TIMES A DAY PO
     Route: 048
     Dates: start: 20080922, end: 20081120

REACTIONS (8)
  - BLADDER PROLAPSE [None]
  - BLOOD PRESSURE DIASTOLIC DECREASED [None]
  - DYSPNOEA [None]
  - HEART RATE INCREASED [None]
  - MUSCLE DISORDER [None]
  - PAIN [None]
  - RECTAL PROLAPSE [None]
  - SOFT TISSUE DISORDER [None]
